FAERS Safety Report 8150683-8 (Version None)
Quarter: 2012Q1

REPORT INFORMATION
  Report Type: 
  Country: None (occurrence: None)
  Receive Date: 20120220
  Receipt Date: 20120214
  Transmission Date: 20120608
  Serious: Yes (Hospitalization, Other)
  Sender: FDA-Public Use
  Company Number: PHHY2011CA73116

PATIENT
  Sex: Female

DRUGS (6)
  1. ZOLEDRONOC ACID [Suspect]
     Indication: OSTEOPOROSIS
     Dosage: 5 MG, UNK
     Route: 042
     Dates: start: 20110704
  2. NAPROXEN [Concomitant]
  3. LEVOTHYROXINE SODIUM [Concomitant]
  4. AMITRIPTYLINE HCL [Concomitant]
  5. ATORVASTATIN [Concomitant]
  6. CELEXA [Concomitant]

REACTIONS (11)
  - RASH [None]
  - ABDOMINAL DISCOMFORT [None]
  - RESPIRATORY FAILURE [None]
  - NAUSEA [None]
  - BONE PAIN [None]
  - DYSPNOEA [None]
  - DECREASED APPETITE [None]
  - SKIN IRRITATION [None]
  - CHEST DISCOMFORT [None]
  - ARTHRALGIA [None]
  - RESPIRATORY DISTRESS [None]
